FAERS Safety Report 7426148-5 (Version None)
Quarter: 2011Q2

REPORT INFORMATION
  Report Type: 
  Country: None (occurrence: None)
  Receive Date: 20110420
  Receipt Date: 20110411
  Transmission Date: 20111010
  Serious: Yes (Other)
  Sender: FDA-Public Use
  Company Number: PHHY2011US19270

PATIENT
  Sex: Female

DRUGS (34)
  1. HYDROXYZINE [Concomitant]
     Dosage: 25 MG, TID
  2. OXYTROL [Concomitant]
     Dosage: 3.9 MG, UNK
  3. TIZANIDINE [Concomitant]
     Dosage: 4 MG, UNK (240 MONTHLY)
  4. LAMISIL [Concomitant]
     Dosage: 250 MG, QD
  5. BUTORPHANOL [Concomitant]
     Dosage: 10 ML, TWO TIME A MONTH
  6. HYDROCODONE [Concomitant]
     Dosage: 10/500, THREE DAY PRN (50000 U EVERY MONTH)
  7. CALTRATE 600 + VITAMIN D [Concomitant]
     Dosage: 1 DF, DAILY
  8. TRIAMCINOLONE ACETONIDE W/NYSTATIN [Concomitant]
     Dosage: UNK, DAILY
  9. SOLU-MEDROL [Suspect]
     Dosage: 1 G, UNK
  10. PROMETHAZINE [Concomitant]
     Dosage: 25 MG, PRN
  11. VITAMIN D [Concomitant]
     Dosage: UNK
  12. ACUVIL [Concomitant]
     Dosage: 1 DRP, UNK
  13. LIDOCAINE [Concomitant]
     Dosage: UNK
  14. FLUCONAZOLE [Concomitant]
     Dosage: 150 MG, EVERY TWO MONTH
  15. ARTICVAL TEARS [Concomitant]
     Dosage: 2-3 DROP EACH EYE DAILY
  16. MULTI-VITAMIN [Concomitant]
     Dosage: UNK, DAILY
  17. VITAMIN B-12 [Concomitant]
     Dosage: UNK, MONTHLY
  18. LOVAZA [Concomitant]
     Dosage: 1000 MG, TID
  19. FUROSEMIDE [Concomitant]
     Dosage: 40 MG, QD (AS NEEDED)
     Route: 048
  20. GABAPENTIN [Concomitant]
     Dosage: 300 MG, SIX TIMES DAILY
  21. BETAMETHASONE [Concomitant]
     Dosage: UNK, DAILY
  22. DETROL [Concomitant]
     Dosage: 4 MG, QD
  23. PRILOCAINE HYDROCHLORIDE [Concomitant]
     Dosage: UNK
  24. EPINEPHRINE [Concomitant]
     Dosage: UNK
  25. ALBUTEROL [Concomitant]
     Dosage: 2.5 MG, UNK
  26. PROTONIX [Concomitant]
     Dosage: 40 MG, QD
  27. GILENYA [Suspect]
     Indication: MULTIPLE SCLEROSIS
     Dosage: 0.5 MG, QD
     Route: 048
     Dates: start: 20110303
  28. NAPROXEN [Concomitant]
     Dosage: 500 MG, TID
  29. CYMBALTA [Concomitant]
     Dosage: 60 MG, QD
  30. VENTOLIN [Concomitant]
     Dosage: UNK
  31. XIBROM [Concomitant]
     Dosage: 2 DRP, IN EACH EYES
  32. TOTAL B WITH C [Concomitant]
     Dosage: UNK
  33. TEHOENEDINE [Concomitant]
     Dosage: 2 DF, QID
  34. CLONAZEPAM [Concomitant]
     Dosage: 1 MG, QHS

REACTIONS (26)
  - EPISTAXIS [None]
  - PALPITATIONS [None]
  - CYANOSIS [None]
  - DYSPNOEA [None]
  - PYREXIA [None]
  - POLYURIA [None]
  - ODYNOPHAGIA [None]
  - BACK PAIN [None]
  - NECK PAIN [None]
  - DYSPHAGIA [None]
  - ANGIOEDEMA [None]
  - OEDEMA PERIPHERAL [None]
  - PAIN [None]
  - EYELID PTOSIS [None]
  - LIP OEDEMA [None]
  - SINUSITIS [None]
  - GAIT DISTURBANCE [None]
  - PERIORBITAL OEDEMA [None]
  - HYPERTENSION [None]
  - HEART RATE DECREASED [None]
  - OEDEMA GENITAL [None]
  - SWELLING [None]
  - PHOTOSENSITIVITY REACTION [None]
  - DYSARTHRIA [None]
  - NAUSEA [None]
  - MIGRAINE [None]
